FAERS Safety Report 8268869-0 (Version None)
Quarter: 2012Q2

REPORT INFORMATION
  Report Type: 
  Country: None (occurrence: None)
  Receive Date: 20120409
  Receipt Date: 20120404
  Transmission Date: 20120825
  Serious: Yes (Death)
  Sender: FDA-Public Use
  Company Number: AU-ASTRAZENECA-2010SE10024

PATIENT
  Age: 28227 Day
  Sex: Male

DRUGS (1)
  1. ZOLADEX [Suspect]
     Indication: PROSTATE CANCER
     Dosage: 10.8 MG
     Route: 058
     Dates: start: 20091130

REACTIONS (3)
  - DISEASE PROGRESSION [None]
  - HOT FLUSH [None]
  - OSTEOARTHRITIS [None]
